FAERS Safety Report 25279087 (Version 1)
Quarter: 2025Q2

REPORT INFORMATION
  Report Type: Spontaneous
  Country: US (occurrence: None)
  Receive Date: 20250507
  Receipt Date: 20250507
  Transmission Date: 20250716
  Serious: Yes (Hospitalization)
  Sender: FDA-CTU
  Company Number: None

PATIENT
  Age: 74 Year
  Sex: Female

DRUGS (1)
  1. LENALIDOMIDE [Suspect]
     Active Substance: LENALIDOMIDE
     Indication: Rheumatoid arthritis

REACTIONS (7)
  - Rash erythematous [None]
  - Skin exfoliation [None]
  - Nausea [None]
  - Stomatitis [None]
  - Dyspnoea [None]
  - Ageusia [None]
  - Anosmia [None]
